FAERS Safety Report 25966339 (Version 1)
Quarter: 2025Q4

REPORT INFORMATION
  Report Type: Spontaneous
  Country: US (occurrence: US)
  Receive Date: 20251028
  Receipt Date: 20251028
  Transmission Date: 20260118
  Serious: Yes (Other)
  Sender: LANNETT
  Company Number: US-LANNETT COMPANY, INC.-US-2025LAN000082

PATIENT
  Age: 59 Year
  Weight: 178.71 kg

DRUGS (2)
  1. BUPRENORPHINE HYDROCHLORIDE\NALOXONE HYDROCHLORIDE [Suspect]
     Active Substance: BUPRENORPHINE HYDROCHLORIDE\NALOXONE HYDROCHLORIDE
     Indication: Drug dependence
     Dosage: UNK  TID
  2. ALPRAZOLAM [Concomitant]
     Active Substance: ALPRAZOLAM
     Indication: Product used for unknown indication
     Dosage: UNK, UNK
     Route: 065

REACTIONS (21)
  - Dental operation [Recovered/Resolved]
  - Depression [Unknown]
  - Drooling [Recovering/Resolving]
  - Socioeconomic precarity [Unknown]
  - Emotional distress [Unknown]
  - Feeding disorder [Unknown]
  - Frustration tolerance decreased [Unknown]
  - General physical condition abnormal [Unknown]
  - Loss of employment [Unknown]
  - Mastication disorder [Unknown]
  - Oral discomfort [Unknown]
  - Psychiatric symptom [Unknown]
  - Quality of life decreased [Unknown]
  - Dental caries [Unknown]
  - Fatigue [Unknown]
  - Pain [Unknown]
  - Product complaint [Unknown]
  - Product dose omission issue [Unknown]
  - Tooth extraction [Unknown]
  - Tooth fracture [Recovered/Resolved]
  - Tooth loss [Unknown]
